FAERS Safety Report 8473578-9 (Version None)
Quarter: 2012Q2

REPORT INFORMATION
  Report Type: 
  Country: None (occurrence: None)
  Receive Date: 20120628
  Receipt Date: 20110912
  Transmission Date: 20120825
  Serious: Yes (Other)
  Sender: FDA-Public Use
  Company Number: US-MYLANLABS-2011S1012124

PATIENT
  Age: 31 Year
  Sex: Male

DRUGS (5)
  1. CLOZAPINE [Suspect]
     Route: 048
     Dates: end: 20110718
  2. CLOZAPINE [Suspect]
     Route: 048
     Dates: start: 20110718
  3. CLOZAPINE [Suspect]
     Dates: start: 20110601, end: 20110718
  4. CLOZAPINE [Suspect]
     Dates: end: 20110601
  5. CLOZAPINE [Suspect]
     Dates: start: 20110718

REACTIONS (1)
  - GRANULOCYTOPENIA [None]
